FAERS Safety Report 14665119 (Version 1)
Quarter: 2018Q1

REPORT INFORMATION
  Report Type: Spontaneous
  Country: US (occurrence: US)
  Receive Date: 20180320
  Receipt Date: 20180320
  Transmission Date: 20180509
  Serious: Yes (Death)
  Sender: FDA-Public Use
  Company Number: None

PATIENT
  Age: 76 Year
  Sex: Female
  Weight: 90 kg

DRUGS (1)
  1. OCREVUS [Suspect]
     Active Substance: OCRELIZUMAB
     Indication: PRIMARY PROGRESSIVE MULTIPLE SCLEROSIS
     Dosage: ?          OTHER FREQUENCY:6 MONTHS;?
     Route: 041
     Dates: start: 20180123, end: 20180123

REACTIONS (4)
  - Seizure [None]
  - Respiratory failure [None]
  - Asthenia [None]
  - Encephalopathy [None]

NARRATIVE: CASE EVENT DATE: 20180201
